FAERS Safety Report 8119044-1 (Version None)
Quarter: 2011Q4

REPORT INFORMATION
  Report Type: 
  Country: None (occurrence: None)
  Receive Date: 20111227
  Receipt Date: 20111012
  Transmission Date: 20120403
  Serious: No
  Sender: FDA-Public Use
  Company Number: PHEH2011US05011

PATIENT
  Age: 49 Year
  Sex: Female

DRUGS (5)
  1. RESTASIS [Concomitant]
  2. XANAX [Concomitant]
  3. ZANAFLEX [Concomitant]
  4. LEXAPRO [Concomitant]
  5. GILENYA [Suspect]
     Indication: MULTIPLE SCLEROSIS
     Dosage: 0.5 MG, QD, ORAL
     Route: 048
     Dates: start: 20110829

REACTIONS (4)
  - MOOD ALTERED [None]
  - ANGER [None]
  - DECREASED INTEREST [None]
  - APATHY [None]
